FAERS Safety Report 5625532-X (Version None)
Quarter: 2008Q1

REPORT INFORMATION
  Report Type: 
  Country: None (occurrence: None)
  Receive Date: 20080211
  Receipt Date: 20080211
  Transmission Date: 20080703
  Serious: Yes (Hospitalization)
  Sender: FDA-Public Use
  Company Number: None

PATIENT
  Sex: Male
  Weight: 68.9 kg

DRUGS (11)
  1. TAXOTERE [Suspect]
     Dosage: 130 MG
  2. ASPIRIN [Concomitant]
  3. BROMAZEPAM [Concomitant]
  4. CALCIUM [Concomitant]
  5. CRESTOR [Concomitant]
  6. OMEPRAZOLE [Concomitant]
  7. OXAZEPAM [Concomitant]
  8. PREPARATION H [Concomitant]
  9. PROCHLORPERAZINE [Concomitant]
  10. VITAMIN D [Concomitant]
  11. ZOLADEX [Concomitant]

REACTIONS (1)
  - NEUTROPHIL COUNT ABNORMAL [None]
